FAERS Safety Report 18839352 (Version 1)
Quarter: 2021Q1

REPORT INFORMATION
  Report Type: Spontaneous
  Country: IT (occurrence: IT)
  Receive Date: 20210203
  Receipt Date: 20210203
  Transmission Date: 20210419
  Serious: Yes (Hospitalization)
  Sender: FDA-Public Use
  Company Number: IT-AUROBINDO-AUR-APL-2021-004340

PATIENT
  Age: 27 Year
  Sex: Female

DRUGS (1)
  1. PARACETAMOL [Suspect]
     Active Substance: ACETAMINOPHEN
     Indication: DYSMENORRHOEA
     Dosage: 1 GRAM (TOTAL)
     Route: 065
     Dates: start: 20210103, end: 20210103

REACTIONS (1)
  - Hyperthrombinaemia [Not Recovered/Not Resolved]

NARRATIVE: CASE EVENT DATE: 20210103
